FAERS Safety Report 9028583 (Version 3)
Quarter: 2013Q3

REPORT INFORMATION
  Report Type: Report from Study
  Country: US (occurrence: US)
  Receive Date: 20130124
  Receipt Date: 20130823
  Transmission Date: 20140515
  Serious: Yes (Death, Life-Threatening)
  Sender: FDA-Public Use
  Company Number: US-GLAXOSMITHKLINE-B0860172A

PATIENT
  Age: 72 Year
  Sex: Male
  Weight: 98 kg

DRUGS (5)
  1. FLUTICASONE FUROATE [Suspect]
     Indication: CHRONIC OBSTRUCTIVE PULMONARY DISEASE
     Dates: start: 20120406, end: 20121009
  2. BENICAR [Concomitant]
     Indication: HYPERTENSION
     Dosage: 40MG PER DAY
     Route: 048
     Dates: start: 1999
  3. CRESTOR [Concomitant]
     Indication: HYPERCHOLESTEROLAEMIA
     Dosage: 10MG PER DAY
     Route: 048
  4. SAXAGLIPTIN [Concomitant]
     Indication: DIABETES MELLITUS
     Route: 048
     Dates: start: 1999
  5. METFORMIN [Concomitant]
     Indication: DIABETES MELLITUS
     Route: 048
     Dates: start: 1999

REACTIONS (1)
  - Non-small cell lung cancer stage IIIB [Fatal]
